FAERS Safety Report 5358084-2 (Version None)
Quarter: 2007Q2

REPORT INFORMATION
  Report Type: 
  Country: None (occurrence: None)
  Receive Date: 20070530
  Receipt Date: 20070209
  Transmission Date: 20071010
  Serious: Yes (Hospitalization, Other)
  Sender: FDA-Public Use
  Company Number: US200702002037

PATIENT
  Age: 41 Year
  Sex: Male

DRUGS (4)
  1. ZYPREXA [Suspect]
     Indication: SCHIZOAFFECTIVE DISORDER
     Dosage: SEE IMAGE
  2. GLIPIZIDE [Concomitant]
  3. LITHIUM CARBONATE [Concomitant]
  4. CELEXA [Concomitant]

REACTIONS (1)
  - BLOOD GLUCOSE INCREASED [None]
